FAERS Safety Report 5100024-5 (Version None)
Quarter: 2006Q3

REPORT INFORMATION
  Report Type: 
  Country: None (occurrence: None)
  Receive Date: 20060908
  Receipt Date: 20060831
  Transmission Date: 20061208
  Serious: Yes (Other)
  Sender: FDA-Public Use
  Company Number: 2006UW17208

PATIENT
  Age: 67 Year
  Sex: Male

DRUGS (3)
  1. ATENOLOL [Suspect]
     Route: 048
  2. NORVASC [Suspect]
  3. DEMAREX [Suspect]

REACTIONS (2)
  - DIABETES MELLITUS [None]
  - HEART TRANSPLANT [None]
